FAERS Safety Report 12348579 (Version 2)
Quarter: 2016Q3

REPORT INFORMATION
  Report Type: Spontaneous
  Country: US (occurrence: US)
  Receive Date: 20160509
  Receipt Date: 20160714
  Transmission Date: 20161109
  Serious: No
  Sender: FDA-Public Use
  Company Number: US-ASTRAZENECA-2016SE47013

PATIENT
  Age: 65 Year
  Sex: Female
  Weight: 70.8 kg

DRUGS (9)
  1. LIPITOR [Concomitant]
     Active Substance: ATORVASTATIN CALCIUM
     Indication: BLOOD CHOLESTEROL INCREASED
     Route: 048
     Dates: start: 20160420
  2. ELQUIS [Concomitant]
     Indication: THROMBOSIS
     Route: 048
     Dates: start: 20160216
  3. FASLODEX [Suspect]
     Active Substance: FULVESTRANT
     Indication: BREAST CANCER METASTATIC
     Route: 030
     Dates: start: 20160218
  4. AROMASIN [Concomitant]
     Active Substance: EXEMESTANE
     Indication: BREAST CANCER
     Route: 048
  5. FLONASE OTC [Concomitant]
     Indication: ASTHMA
     Dosage: AT NIGHT
     Route: 045
     Dates: start: 201601
  6. XGEVA [Concomitant]
     Active Substance: DENOSUMAB
     Indication: BONE DISORDER
     Dosage: MONTHLY
     Dates: start: 20160218
  7. SYNTHROID [Concomitant]
     Active Substance: LEVOTHYROXINE SODIUM
     Indication: THYROID DISORDER
     Dosage: 100,DAILY
     Route: 048
     Dates: start: 1995
  8. QUINAPRIL. [Concomitant]
     Active Substance: QUINAPRIL
     Indication: HYPERTENSION
     Route: 048
  9. ARNUITY [Concomitant]
     Indication: ASTHMA
     Route: 055
     Dates: start: 20150804

REACTIONS (7)
  - Oropharyngeal pain [Unknown]
  - Cold sweat [Unknown]
  - Pain [Unknown]
  - Pleural effusion [Unknown]
  - Loss of consciousness [Unknown]
  - Chest pain [Unknown]
  - Injection site mass [Unknown]

NARRATIVE: CASE EVENT DATE: 2016
